FAERS Safety Report 5447912-8 (Version None)
Quarter: 2007Q3

REPORT INFORMATION
  Report Type: 
  Country: None (occurrence: None)
  Receive Date: 20070910
  Receipt Date: 20070904
  Transmission Date: 20080115
  Serious: Yes (Hospitalization)
  Sender: FDA-Public Use
  Company Number: NL-PFIZER INC-2007069868

PATIENT
  Sex: Female
  Weight: 55 kg

DRUGS (5)
  1. SUTENT [Suspect]
     Indication: RENAL CELL CARCINOMA STAGE UNSPECIFIED
     Route: 048
     Dates: start: 20070525, end: 20070715
  2. METOPROLOL TARTRATE [Concomitant]
     Dosage: TEXT:100 MG
     Route: 048
  3. ANTAGEL [Concomitant]
  4. MOVICOLON [Concomitant]
     Route: 048
  5. DEXAMETHASONE 0.5MG TAB [Concomitant]
     Route: 048

REACTIONS (1)
  - THYROIDITIS [None]
